FAERS Safety Report 9619529 (Version 4)
Quarter: 2013Q4

REPORT INFORMATION
  Report Type: Spontaneous
  Country: IT (occurrence: IT)
  Receive Date: 20131014
  Receipt Date: 20131219
  Transmission Date: 20140711
  Serious: Yes (Hospitalization)
  Sender: FDA-Public Use
  Company Number: IT-PFIZER INC-2013292171

PATIENT
  Age: 48 Year
  Sex: Female

DRUGS (1)
  1. ALPRAZOLAM [Suspect]
     Indication: INSOMNIA
     Dosage: 50 DROPS, TOTAL
     Route: 048
     Dates: start: 20130925

REACTIONS (4)
  - Drug abuse [Recovering/Resolving]
  - Off label use [Recovering/Resolving]
  - Psychomotor skills impaired [Recovering/Resolving]
  - Mood altered [Unknown]
